FAERS Safety Report 24882001 (Version 1)
Quarter: 2025Q1

REPORT INFORMATION
  Report Type: Report from Study
  Country: US (occurrence: US)
  Receive Date: 20250124
  Receipt Date: 20250124
  Transmission Date: 20250409
  Serious: Yes (Other)
  Sender: ASTELLAS
  Company Number: US-ASTELLAS-2025-AER-003591

PATIENT
  Age: 71 Year
  Sex: Male

DRUGS (1)
  1. ENZALUTAMIDE [Suspect]
     Active Substance: ENZALUTAMIDE
     Indication: Product used for unknown indication
     Route: 065

REACTIONS (1)
  - Gastric haemorrhage [Unknown]
